FAERS Safety Report 9283614 (Version 1)
Quarter: 2013Q2

REPORT INFORMATION
  Report Type: Spontaneous
  Country: DE (occurrence: DE)
  Receive Date: 20130510
  Receipt Date: 20130510
  Transmission Date: 20140414
  Serious: Yes (Hospitalization, Other)
  Sender: FDA-Public Use
  Company Number: PHHY2013DE042261

PATIENT
  Age: 65 Year
  Sex: Male

DRUGS (6)
  1. GLIVEC [Suspect]
     Indication: CHRONIC MYELOID LEUKAEMIA
     Dosage: 400 MG, QD
     Dates: start: 200008
  2. GLIVEC [Suspect]
     Dosage: 800 MG, UNK
  3. TASIGNA [Suspect]
     Indication: CHRONIC MYELOID LEUKAEMIA
     Dosage: 400 MG, BID
  4. SPRYCEL [Suspect]
     Indication: CHRONIC MYELOID LEUKAEMIA
     Dosage: 100 MG, QD
  5. INTERFERON [Concomitant]
     Dosage: UNK UKN, UNK
  6. CYTARABINE [Concomitant]
     Dosage: UNK UKN, UNK

REACTIONS (11)
  - Upper gastrointestinal haemorrhage [Unknown]
  - Sarcoma [Unknown]
  - Second primary malignancy [Unknown]
  - Metastases to lymph nodes [Unknown]
  - Chronic myeloid leukaemia [Unknown]
  - Leukaemia recurrent [Unknown]
  - Retroperitoneal lymphadenopathy [Unknown]
  - Duodenal polyp [Unknown]
  - Abdominal pain [Unknown]
  - Muscle spasms [Unknown]
  - Asthenia [Unknown]
